FAERS Safety Report 5552724-0 (Version None)
Quarter: 2007Q4

REPORT INFORMATION
  Report Type: 
  Country: None (occurrence: None)
  Receive Date: 20071212
  Receipt Date: 20070622
  Transmission Date: 20080405
  Serious: No
  Sender: FDA-Public Use
  Company Number: US-AMGEN-KDL223043

PATIENT
  Sex: Female

DRUGS (2)
  1. ENBREL [Suspect]
     Indication: RHEUMATOID ARTHRITIS
     Route: 058
     Dates: start: 20060501
  2. METHOTREXATE [Concomitant]

REACTIONS (5)
  - ALOPECIA [None]
  - FALL [None]
  - PSORIATIC ARTHROPATHY [None]
  - SKIN LACERATION [None]
  - VESSEL PUNCTURE SITE REACTION [None]
